FAERS Safety Report 9874382 (Version 2)
Quarter: 2014Q1

REPORT INFORMATION
  Report Type: Report from Study
  Country: DE (occurrence: DE)
  Receive Date: 20140206
  Receipt Date: 20140226
  Transmission Date: 20141002
  Serious: Yes (Death)
  Sender: FDA-Public Use
  Company Number: DE-BEH-2014040452

PATIENT
  Age: 46 Year
  Sex: Female
  Weight: 78 kg

DRUGS (8)
  1. PRIVIGEN [Suspect]
     Indication: ALLOGENIC BONE MARROW TRANSPLANTATION THERAPY
     Dosage: INFUSION RATE MIN/MAX:  0.39/2.6 ML/MIN
     Route: 042
     Dates: start: 20130821, end: 20130821
  2. PRIVIGEN [Suspect]
     Dosage: INFUSION RATE MIN/MAX:  0.39/2.6 ML/MIN
     Route: 042
     Dates: start: 20130822, end: 20130822
  3. PRIVIGEN [Suspect]
     Dosage: INFUSION RATE MIN/MAX:  0.78/6.27 ML/MIN
     Route: 042
     Dates: start: 20131016, end: 20131016
  4. PRIVIGEN [Suspect]
     Dosage: INFUSION RATE MIN/MAX:  1.3/9.41 ML/MIN
     Route: 042
     Dates: start: 20131017, end: 20131017
  5. PRIVIGEN [Suspect]
     Indication: STEM CELL TRANSPLANT
     Dosage: INFUSION RATE MIN/MAX:  1.3/9.41 ML/MIN
     Route: 042
     Dates: start: 20131018, end: 20131018
  6. ANTIFUNGAL DRUG [Concomitant]
  7. VIROSTATIC AGENT [Concomitant]
  8. ANTIBIOTIC [Concomitant]

REACTIONS (2)
  - Multi-organ failure [Fatal]
  - Atypical pneumonia [Fatal]
